FAERS Safety Report 10045254 (Version 2)
Quarter: 2014Q2

REPORT INFORMATION
  Report Type: Spontaneous
  Country: US (occurrence: US)
  Receive Date: 20140328
  Receipt Date: 20140515
  Transmission Date: 20141212
  Serious: Yes (Death, Hospitalization)
  Sender: FDA-Public Use
  Company Number: US-INCYTE CORPORATION-2014IN000830

PATIENT
  Age: 70 Year
  Sex: Male

DRUGS (13)
  1. JAKAFI [Suspect]
     Indication: JANUS KINASE 2 MUTATION
     Dosage: 10 MG, BID
     Route: 048
  2. JAKAFI [Suspect]
     Indication: MYELOFIBROSIS
     Dosage: 20 MG, BID
     Route: 048
     Dates: start: 20140207
  3. JAKAFI [Suspect]
     Dosage: 10 MG, BID
     Route: 048
     Dates: start: 20140217
  4. JAKAFI [Suspect]
     Dosage: 5 MG, BID
     Route: 048
     Dates: start: 201402
  5. ALLOPURINOL [Concomitant]
  6. BENZONATATE [Concomitant]
  7. BUMETANIDE [Concomitant]
  8. FINASTERIDE [Concomitant]
  9. POTASSIUM [Concomitant]
     Dosage: 20 MEQ, UNK
  10. METOPROLOL [Concomitant]
  11. PANTOPRAZOLE [Concomitant]
  12. SILODOSIN [Concomitant]
  13. WARFARIN [Concomitant]

REACTIONS (7)
  - Myelofibrosis [Fatal]
  - Leukocytosis [Unknown]
  - Renal failure [Unknown]
  - Sepsis [Unknown]
  - Hypotension [Unknown]
  - Splenomegaly [Unknown]
  - Diarrhoea [Unknown]
